FAERS Safety Report 23297557 (Version 6)
Quarter: 2024Q1

REPORT INFORMATION
  Report Type: Spontaneous
  Country: JP (occurrence: JP)
  Receive Date: 20231214
  Receipt Date: 20240205
  Transmission Date: 20240410
  Serious: Yes (Other)
  Sender: FDA-Public Use
  Company Number: JP-KYOWAKIRIN-2023KK019189

PATIENT
  Sex: Male

DRUGS (4)
  1. PEGFILGRASTIM [Suspect]
     Active Substance: PEGFILGRASTIM
     Indication: Product used for unknown indication
     Dosage: UNK
     Route: 058
     Dates: start: 20231124
  2. PEGFILGRASTIM [Suspect]
     Active Substance: PEGFILGRASTIM
     Dosage: UNK
     Route: 065
     Dates: start: 20231219
  3. CABAZITAXEL [Concomitant]
     Active Substance: CABAZITAXEL
     Indication: Prostate cancer
     Dosage: 25 UG/M2
     Route: 065
     Dates: start: 20231124
  4. CABAZITAXEL [Concomitant]
     Active Substance: CABAZITAXEL
     Dosage: UNK, CYCLE 2
     Route: 065
     Dates: start: 20231218

REACTIONS (2)
  - Neutropenia [Unknown]
  - Neutropenia [Recovered/Resolved]

NARRATIVE: CASE EVENT DATE: 20231201
